FAERS Safety Report 12611759 (Version 3)
Quarter: 2016Q4

REPORT INFORMATION
  Report Type: Spontaneous
  Country: US (occurrence: US)
  Receive Date: 20160801
  Receipt Date: 20161024
  Transmission Date: 20170207
  Serious: Yes (Other)
  Sender: FDA-Public Use
  Company Number: US-JNJFOC-20160721462

PATIENT
  Age: 90 Year
  Sex: Female
  Weight: 49.9 kg

DRUGS (8)
  1. UREA. [Concomitant]
     Active Substance: UREA
     Indication: SKIN EXFOLIATION
     Route: 065
  2. AVEXON [Concomitant]
     Route: 065
     Dates: start: 20160603
  3. STELARA [Suspect]
     Active Substance: USTEKINUMAB
     Indication: PSORIASIS
     Route: 058
     Dates: start: 20160625, end: 20160625
  4. LIDEX [Concomitant]
     Active Substance: FLUOCINONIDE
     Route: 065
     Dates: start: 20160321
  5. PRAMOXINE [Concomitant]
     Active Substance: PRAMOXINE
     Indication: PRURITUS
     Route: 065
     Dates: start: 20160627
  6. STELARA [Suspect]
     Active Substance: USTEKINUMAB
     Indication: PSORIASIS
     Route: 058
     Dates: start: 20160625, end: 20160625
  7. TRIAMCINOLONE [Concomitant]
     Active Substance: TRIAMCINOLONE
     Indication: SKIN FISSURES
     Route: 061
  8. SPIRONOLACTONE. [Concomitant]
     Active Substance: SPIRONOLACTONE
     Route: 048

REACTIONS (1)
  - Squamous cell carcinoma [Recovering/Resolving]

NARRATIVE: CASE EVENT DATE: 20160628
